FAERS Safety Report 13042558 (Version 1)
Quarter: 2016Q4

REPORT INFORMATION
  Report Type: Spontaneous
  Country: AU (occurrence: AU)
  Receive Date: 20161219
  Receipt Date: 20161219
  Transmission Date: 20170207
  Serious: Yes (Other)
  Sender: FDA-Public Use
  Company Number: AU-OMEROS CORPORATION-2016OME00039

PATIENT
  Age: 53 Year
  Sex: Female

DRUGS (2)
  1. PREDNEFRINE FORTE [Suspect]
     Active Substance: PHENYLEPHRINE HYDROCHLORIDE\PREDNISOLONE ACETATE
     Indication: IRIDOCYCLITIS
     Dosage: UNK, 1X/HOUR
     Route: 061
  2. PHENYLEPHRINE [Suspect]
     Active Substance: PHENYLEPHRINE\PHENYLEPHRINE HYDROCHLORIDE
     Indication: IRIDOCYCLITIS
     Route: 031

REACTIONS (2)
  - Acute pulmonary oedema [Recovered/Resolved]
  - Stress cardiomyopathy [Recovered/Resolved]
